FAERS Safety Report 10252079 (Version 5)
Quarter: 2015Q2

REPORT INFORMATION
  Report Type: Report from Study
  Country: CA (occurrence: CA)
  Receive Date: 20140623
  Receipt Date: 20150513
  Transmission Date: 20150821
  Serious: Yes (Congenital Anomaly, Other)
  Sender: FDA-Public Use
  Company Number: PHHY2014CA053386

PATIENT
  Sex: Male
  Weight: 1.86 kg

DRUGS (4)
  1. VITAMIN D [Concomitant]
     Active Substance: CHOLECALCIFEROL
     Indication: SUPPLEMENTATION THERAPY
     Dosage: MATERNAL DOSE
     Route: 064
     Dates: start: 201307
  2. DICLECTIN [Concomitant]
     Active Substance: DOXYLAMINE\PYRIDOXINE
     Indication: VOMITING
     Dosage: UNK
     Route: 064
     Dates: start: 201309, end: 201310
  3. MATERNA [Concomitant]
     Indication: PRODUCT USED FOR UNKNOWN INDICATION
     Dosage: MATERNAL DOSE
     Route: 064
     Dates: start: 201307, end: 201402
  4. GILENYA [Suspect]
     Active Substance: FINGOLIMOD HYDROCHLORIDE
     Indication: RELAPSING-REMITTING MULTIPLE SCLEROSIS
     Dosage: MATERNAL DOSE
     Route: 064

REACTIONS (3)
  - Premature baby [Unknown]
  - Cryptorchism [Unknown]
  - Foetal exposure during pregnancy [Unknown]
